FAERS Safety Report 13557545 (Version 1)
Quarter: 2017Q2

REPORT INFORMATION
  Report Type: Spontaneous
  Country: US (occurrence: US)
  Receive Date: 20170518
  Receipt Date: 20170518
  Transmission Date: 20170830
  Serious: Yes (Other)
  Sender: FDA-Public Use
  Company Number: US-GUERBET-US-20170066

PATIENT
  Age: 32 Year
  Sex: Female
  Weight: 68 kg

DRUGS (1)
  1. DOTAREM [Suspect]
     Active Substance: GADOTERATE MEGLUMINE
     Indication: NUCLEAR MAGNETIC RESONANCE IMAGING
     Route: 042
     Dates: start: 20170322, end: 20170322

REACTIONS (7)
  - Head discomfort [Recovering/Resolving]
  - Urticaria [Recovering/Resolving]
  - Throat tightness [Recovering/Resolving]
  - Feeling abnormal [Recovering/Resolving]
  - Pruritus [Recovering/Resolving]
  - Sneezing [Recovering/Resolving]
  - Sinus operation [Recovering/Resolving]

NARRATIVE: CASE EVENT DATE: 20170322
